FAERS Safety Report 18098257 (Version 1)
Quarter: 2020Q3

REPORT INFORMATION
  Report Type: Spontaneous
  Country: SE (occurrence: SE)
  Receive Date: 20200731
  Receipt Date: 20200731
  Transmission Date: 20201103
  Serious: Yes (Other)
  Sender: FDA-Public Use
  Company Number: SE-BAYER-2020-149711

PATIENT
  Age: 14 Year
  Sex: Female
  Weight: 54 kg

DRUGS (1)
  1. YAZ [Suspect]
     Active Substance: DROSPIRENONE\ETHINYL ESTRADIOL
     Indication: CONTRACEPTION
     Dosage: 1 DF, QD
     Route: 048
     Dates: start: 20100609, end: 2020

REACTIONS (3)
  - Vulvovaginal pain [Recovering/Resolving]
  - Genital infection fungal [Recovering/Resolving]
  - Mucosal disorder [Recovering/Resolving]

NARRATIVE: CASE EVENT DATE: 20100908
